FAERS Safety Report 17065801 (Version 2)
Quarter: 2020Q1

REPORT INFORMATION
  Report Type: Spontaneous
  Country: FR (occurrence: FR)
  Receive Date: 20191122
  Receipt Date: 20200103
  Transmission Date: 20200409
  Serious: Yes (Hospitalization, Other)
  Sender: FDA-Public Use
  Company Number: FR-MYLANLABS-2019M1112184

PATIENT
  Age: 50 Year
  Sex: Female
  Weight: 64 kg

DRUGS (20)
  1. ALPRAZOLAM. [Concomitant]
     Active Substance: ALPRAZOLAM
     Dosage: 1.5 MILLIGRAM, QD, 0.50 MILLIGRAM, TID
  2. ABATACEPT [Concomitant]
     Active Substance: ABATACEPT
  3. PREDNISONE. [Suspect]
     Active Substance: PREDNISONE
     Dosage: 20 MILLIGRAM, QD
     Route: 065
     Dates: start: 20190218
  4. RIVOTRIL [Concomitant]
     Active Substance: CLONAZEPAM
     Dosage: 2.5 MILLIGRAM PER MILLILITRE, 30 DROPS AT BEDTIME
  5. THERALENE [Concomitant]
     Active Substance: TRIMEPRAZINE
     Dosage: 40 MILLIGRAM PER MILLILITRE, 10 DROPS AT BEDTIME
  6. PROCORALAN [Concomitant]
     Active Substance: IVABRADINE
     Dosage: 10 MILLIGRAM, QD, 5 MILLIGRAM, BID
  7. ACUPAN [Concomitant]
     Active Substance: NEFOPAM HYDROCHLORIDE
     Dosage: 60 MILLIGRAM, QW, 20 MILLIGRAM, 3 TIMES/WK
  8. DUPHALAC                           /01526201/ [Concomitant]
     Dosage: 10G/15ML, 1 SACHET MORNING
  9. PROLIA [Suspect]
     Active Substance: DENOSUMAB
     Indication: OSTEOPOROSIS
     Dosage: 60 MILLIGRAM, Q6MO
     Route: 058
     Dates: start: 20190101
  10. DOLIPRANE [Concomitant]
     Active Substance: ACETAMINOPHEN
     Dosage: 3 GRAM, QD, 1 GRAM, TID
  11. UVEDOSE [Concomitant]
     Active Substance: CHOLECALCIFEROL
     Dosage: 100000 INTERNATIONAL UNIT, BIMONTHLY
  12. LAROXYL [Concomitant]
     Active Substance: AMITRIPTYLINE HYDROCHLORIDE
     Dosage: 40 MILLIGRAM PER MILLILITRE, 28 DROPS AT BEDTIME
  13. DURAGESIC [Concomitant]
     Active Substance: FENTANYL
     Dosage: 100 MCG/HR, 1 TRANSDERMAL PATCH IN THE MORNING, EVERY SECOND DAY
  14. PLAQUENIL                          /00072602/ [Concomitant]
     Active Substance: HYDROXYCHLOROQUINE DIPHOSPHATE
     Dosage: 200 MILLIGRAM
  15. PREDNISONE. [Suspect]
     Active Substance: PREDNISONE
     Dosage: 20 TO 30 MG, QD
     Route: 048
     Dates: start: 1986
  16. STILNOX [Concomitant]
     Active Substance: ZOLPIDEM TARTRATE
     Dosage: 10 MILLIGRAM
  17. PREDNISONE. [Suspect]
     Active Substance: PREDNISONE
     Indication: SYSTEMIC LUPUS ERYTHEMATOSUS
     Dosage: 25 MILLIGRAM, QD
     Route: 065
     Dates: start: 20190218
  18. CLOPIDOGREL [Concomitant]
     Active Substance: CLOPIDOGREL BISULFATE
     Dosage: 75 MILLIGRAM, QD
  19. OXYNORMORO [Concomitant]
     Active Substance: OXYCODONE HYDROCHLORIDE
     Dosage: 10 MILLIGRAM
  20. PANTOPRAZOLE [Concomitant]
     Active Substance: PANTOPRAZOLE
     Dosage: 40 MILLIGRAM, QD

REACTIONS (3)
  - Lumbar vertebral fracture [Unknown]
  - Spondylolisthesis [Unknown]
  - Osteonecrosis of jaw [Not Recovered/Not Resolved]

NARRATIVE: CASE EVENT DATE: 201901
